FAERS Safety Report 10590866 (Version 2)
Quarter: 2015Q1

REPORT INFORMATION
  Report Type: Report from Study
  Country: NO (occurrence: NO)
  Receive Date: 20141118
  Receipt Date: 20150115
  Transmission Date: 20150720
  Serious: Yes (Other)
  Sender: FDA-Public Use
  Company Number: NO-BAYER-2014-169123

PATIENT
  Age: 33 Year
  Sex: Female

DRUGS (2)
  1. MIRENA [Suspect]
     Active Substance: LEVONORGESTREL
     Indication: CONTRACEPTION
     Dosage: 20 MCG/24HR, CONT
     Route: 015
     Dates: start: 20140925, end: 20141117
  2. MIRENA [Suspect]
     Active Substance: LEVONORGESTREL
     Indication: CONTRACEPTION
     Dosage: 20 MCG/24HR, CONT
     Route: 015
     Dates: start: 20141117

REACTIONS (5)
  - Post procedural discomfort [None]
  - Rectal perforation [None]
  - Procedural pain [None]
  - Uterine perforation [None]
  - Uterine perforation [Recovered/Resolved]

NARRATIVE: CASE EVENT DATE: 2014
